FAERS Safety Report 10076617 (Version 1)
Quarter: 2014Q2

REPORT INFORMATION
  Report Type: Spontaneous
  Country: US (occurrence: None)
  Receive Date: 20140411
  Receipt Date: 20140411
  Transmission Date: 20141212
  Serious: Yes (Disabling, Other)
  Sender: FDA-Public Use
  Company Number: None

PATIENT
  Age: 56 Year
  Sex: Female
  Weight: 65.32 kg

DRUGS (1)
  1. PRIMAPEXOLE DIHYDROCHLORIDE 0.5MG [Suspect]
     Indication: RESTLESS LEGS SYNDROME
     Dosage: TAKE 2 TABLETS AT BEDTIME, AT BEDTIME, TAKEN BY MOUTH
     Route: 048
     Dates: start: 20090803, end: 20140228

REACTIONS (8)
  - Obsessive-compulsive disorder [None]
  - Condition aggravated [None]
  - Hyperphagia [None]
  - Compulsive shopping [None]
  - Family stress [None]
  - Weight increased [None]
  - Impaired work ability [None]
  - Marital problem [None]
